FAERS Safety Report 7444482-X (Version None)
Quarter: 2011Q2

REPORT INFORMATION
  Report Type: 
  Country: None (occurrence: None)
  Receive Date: 20110420
  Receipt Date: 20110411
  Transmission Date: 20111010
  Serious: Yes (Other)
  Sender: FDA-Public Use
  Company Number: 20109846

PATIENT
  Sex: Female

DRUGS (1)
  1. LIORESAL [Suspect]
     Indication: MUSCLE SPASTICITY
     Dosage: 159.83 MCG, DAILY, INTRATHECAL
     Route: 037

REACTIONS (2)
  - IMPLANT SITE INFECTION [None]
  - POCKET EROSION [None]
